FAERS Safety Report 18670663 (Version 1)
Quarter: 2020Q4

REPORT INFORMATION
  Report Type: Spontaneous
  Country: DK (occurrence: DK)
  Receive Date: 20201228
  Receipt Date: 20201228
  Transmission Date: 20210114
  Serious: Yes (Other)
  Sender: FDA-Public Use
  Company Number: DK-JNJFOC-20201242744

PATIENT
  Age: 35 Year
  Sex: Female

DRUGS (2)
  1. PAMOL [Concomitant]
     Active Substance: ACETAMINOPHEN
     Indication: PAIN IN JAW
     Dosage: STRENGTH: UNKNOWN.
     Route: 065
     Dates: start: 201706
  2. IPREN TABLETS [Suspect]
     Active Substance: IBUPROFEN
     Indication: PAIN IN JAW
     Dosage: STRENGTH: 200 MG.?DOSAGE: 400 MG WEEKLY.
     Route: 048
     Dates: start: 201706

REACTIONS (2)
  - Diarrhoea haemorrhagic [Not Recovered/Not Resolved]
  - Colitis ulcerative [Not Recovered/Not Resolved]

NARRATIVE: CASE EVENT DATE: 20180803
